FAERS Safety Report 17447103 (Version 1)
Quarter: 2020Q1

REPORT INFORMATION
  Report Type: Spontaneous
  Country: ES (occurrence: ES)
  Receive Date: 20200221
  Receipt Date: 20200221
  Transmission Date: 20200409
  Serious: Yes (Other)
  Sender: FDA-Public Use
  Company Number: ES-REGENERON PHARMACEUTICALS, INC.-2020-20903

PATIENT

DRUGS (3)
  1. AFLIBERCEPT IAI [Suspect]
     Active Substance: AFLIBERCEPT
     Indication: NEOVASCULAR AGE-RELATED MACULAR DEGENERATION
     Dosage: TOTAL OF 6 INJECTIONS, LEFT EYE - PRIOR TO COMBINED TREATMENT
     Route: 031
  2. AFLIBERCEPT IAI [Suspect]
     Active Substance: AFLIBERCEPT
     Dosage: 1 DF, ONCE, LEFT EYE - 48H AFTER PHOTODYNAMIC THERAPY
     Route: 031
  3. VERTEPORFIN [Suspect]
     Active Substance: VERTEPORFIN
     Indication: NEOVASCULAR AGE-RELATED MACULAR DEGENERATION

REACTIONS (2)
  - Retinal detachment [Recovered/Resolved]
  - Blindness [Recovered/Resolved]
